FAERS Safety Report 19506264 (Version 2)
Quarter: 2021Q3

REPORT INFORMATION
  Report Type: Report from Study
  Country: FR (occurrence: FR)
  Receive Date: 20210708
  Receipt Date: 20210812
  Transmission Date: 20211014
  Serious: Yes (Other)
  Sender: FDA-Public Use
  Company Number: NVSC2021FR149923

PATIENT
  Age: 6 Year
  Sex: Male
  Weight: 17.3 kg

DRUGS (2)
  1. TRAMETINIB [Suspect]
     Active Substance: TRAMETINIB
     Indication: GLIOMA
     Dosage: 0.02 MG/KG, QD
     Route: 048
     Dates: start: 202012
  2. TRAMETINIB [Suspect]
     Active Substance: TRAMETINIB
     Indication: DYSPLASIA

REACTIONS (9)
  - Papule [Unknown]
  - Blood creatine phosphokinase increased [Recovering/Resolving]
  - Eosinophilia [Unknown]
  - Hypoalbuminaemia [Unknown]
  - Skin lesion [Unknown]
  - Dry skin [Unknown]
  - Full blood count abnormal [Unknown]
  - Myoglobin blood present [Unknown]
  - Aldolase abnormal [Unknown]

NARRATIVE: CASE EVENT DATE: 202101
